FAERS Safety Report 7730246-6 (Version None)
Quarter: 2011Q3

REPORT INFORMATION
  Report Type: 
  Country: None (occurrence: None)
  Receive Date: 20110906
  Receipt Date: 20110902
  Transmission Date: 20111222
  Serious: Yes (Death)
  Sender: FDA-Public Use
  Company Number: PHHY2011NL78235

PATIENT
  Age: 17 Year
  Sex: Female

DRUGS (2)
  1. TOBI [Suspect]
  2. PULMOZYME [Concomitant]

REACTIONS (1)
  - DEATH [None]
